FAERS Safety Report 4871907-6 (Version None)
Quarter: 2006Q1

REPORT INFORMATION
  Report Type: 
  Country: None (occurrence: None)
  Receive Date: 20060104
  Receipt Date: 20051005
  Transmission Date: 20060701
  Serious: Yes (Hospitalization, Disabling)
  Sender: FDA-Public Use
  Company Number: US-MERCK-0510USA04123

PATIENT
  Age: 36 Year
  Sex: Male
  Weight: 77 kg

DRUGS (3)
  1. VIOXX [Suspect]
     Indication: PAIN
     Route: 048
     Dates: start: 19990101, end: 20020701
  2. FIORICET TABLETS [Concomitant]
     Route: 065
  3. CORGARD [Concomitant]
     Route: 048
     Dates: end: 20020501

REACTIONS (2)
  - CHEST PAIN [None]
  - SYNCOPE [None]
